FAERS Safety Report 8695136 (Version 2)
Quarter: 2013Q4

REPORT INFORMATION
  Report Type: Spontaneous
  Country: US (occurrence: US)
  Receive Date: 20120731
  Receipt Date: 20131107
  Transmission Date: 20140711
  Serious: Yes (Other)
  Sender: FDA-Public Use
  Company Number: US-009507513-1207USA009868

PATIENT
  Age: 86 Year
  Sex: Male

DRUGS (3)
  1. ZOCOR [Suspect]
     Dosage: 80 MG, UNK
     Route: 048
  2. COLCHICINE [Concomitant]
     Route: 048
  3. DILTIAZEM HYDROCHLORIDE [Concomitant]
     Dosage: 300 MG, UNK
     Route: 048

REACTIONS (3)
  - Renal failure chronic [Unknown]
  - Asthenia [Unknown]
  - Gait disturbance [Unknown]
